FAERS Safety Report 22871877 (Version 6)
Quarter: 2025Q3

REPORT INFORMATION
  Report Type: Spontaneous
  Country: EU (occurrence: EU)
  Receive Date: 20230828
  Receipt Date: 20250702
  Transmission Date: 20251021
  Serious: Yes (Hospitalization, Other)
  Sender: MYLAN
  Company Number: EU-KRKA-PL2023K09228LIT

PATIENT
  Age: 60 Year
  Sex: Female

DRUGS (31)
  1. TRAMADOL [Suspect]
     Active Substance: TRAMADOL
     Indication: Pain
  2. DICLOFENAC [Suspect]
     Active Substance: DICLOFENAC
     Indication: Inflammation
  3. DICLOFENAC [Suspect]
     Active Substance: DICLOFENAC
     Indication: Pain
  4. DICLOFENAC [Suspect]
     Active Substance: DICLOFENAC
     Indication: Rheumatic fever
  5. DICLOFENAC [Suspect]
     Active Substance: DICLOFENAC
     Indication: Antiinflammatory therapy
  6. DICLOFENAC [Suspect]
     Active Substance: DICLOFENAC
     Indication: Pain
  7. DICLOFENAC [Suspect]
     Active Substance: DICLOFENAC
     Indication: Rheumatoid arthritis
  8. ETORICOXIB [Suspect]
     Active Substance: ETORICOXIB
     Indication: Pain
     Dosage: 90 MILLIGRAM, QD (ONCE A DAY)
  9. METHOTREXATE SODIUM [Suspect]
     Active Substance: METHOTREXATE SODIUM
     Indication: Rheumatoid arthritis
  10. METHOTREXATE SODIUM [Suspect]
     Active Substance: METHOTREXATE SODIUM
     Indication: Pain
  11. METHOTREXATE SODIUM [Suspect]
     Active Substance: METHOTREXATE SODIUM
     Indication: Inflammation
  12. ACETAMINOPHEN [Suspect]
     Active Substance: ACETAMINOPHEN
     Indication: Inflammation
  13. ACETAMINOPHEN [Suspect]
     Active Substance: ACETAMINOPHEN
     Indication: Pain
  14. ACETAMINOPHEN [Suspect]
     Active Substance: ACETAMINOPHEN
     Indication: Antiinflammatory therapy
  15. ACETAMINOPHEN [Suspect]
     Active Substance: ACETAMINOPHEN
     Indication: Inflammation
  16. ACETAMINOPHEN [Suspect]
     Active Substance: ACETAMINOPHEN
     Indication: Pain
  17. ACETAMINOPHEN [Suspect]
     Active Substance: ACETAMINOPHEN
     Indication: Rheumatoid arthritis
  18. KETOPROFEN [Suspect]
     Active Substance: KETOPROFEN
     Indication: Inflammatory pain
  19. KETOPROFEN [Suspect]
     Active Substance: KETOPROFEN
  20. MELOXICAM [Suspect]
     Active Substance: MELOXICAM
     Indication: Pain
  21. METHOTREXATE [Suspect]
     Active Substance: METHOTREXATE
     Indication: Rheumatoid arthritis
  22. METHOTREXATE [Suspect]
     Active Substance: METHOTREXATE
     Indication: Inflammation
  23. METHOTREXATE [Suspect]
     Active Substance: METHOTREXATE
     Indication: Pain
  24. ASPIRIN [Suspect]
     Active Substance: ASPIRIN
     Indication: Stenosis
  25. DICLOFENAC [Suspect]
     Active Substance: DICLOFENAC
     Indication: Inflammation
  26. DICLOFENAC [Suspect]
     Active Substance: DICLOFENAC
     Indication: Antiinflammatory therapy
  27. DICLOFENAC [Suspect]
     Active Substance: DICLOFENAC
     Indication: Pain
  28. DICLOFENAC [Suspect]
     Active Substance: DICLOFENAC
     Indication: Rheumatoid arthritis
  29. LEVOTHYROXINE [Concomitant]
     Active Substance: LEVOTHYROXINE
     Indication: Product used for unknown indication
  30. PREGABALIN [Concomitant]
     Active Substance: PREGABALIN
     Indication: Product used for unknown indication
  31. PANTOPRAZOLE [Concomitant]
     Active Substance: PANTOPRAZOLE
     Indication: Product used for unknown indication

REACTIONS (14)
  - Rheumatoid arthritis [Recovered/Resolved]
  - Diaphragmatic hernia [Unknown]
  - Tachycardia [Unknown]
  - Gastric ulcer [Unknown]
  - Haemorrhage [Unknown]
  - Drug ineffective [Recovered/Resolved]
  - Diarrhoea haemorrhagic [Unknown]
  - Arthralgia [Recovering/Resolving]
  - Drug intolerance [Unknown]
  - Chest pain [Recovering/Resolving]
  - Gastritis [Recovered/Resolved]
  - Haemoglobin abnormal [Unknown]
  - Thyroid hormones decreased [Unknown]
  - Product use in unapproved indication [Unknown]

NARRATIVE: CASE EVENT DATE: 20210208
